FAERS Safety Report 17574821 (Version 2)
Quarter: 2021Q1

REPORT INFORMATION
  Report Type: Spontaneous
  Country: US (occurrence: US)
  Receive Date: 20200324
  Receipt Date: 20210201
  Transmission Date: 20210419
  Serious: Yes (Hospitalization, Other)
  Sender: FDA-Public Use
  Company Number: US-GILEAD-2020-0455937

PATIENT
  Sex: Male
  Weight: 63.5 kg

DRUGS (21)
  1. PREZISTA [Concomitant]
     Active Substance: DARUNAVIR ETHANOLATE
  2. PREDNISONE. [Concomitant]
     Active Substance: PREDNISONE
  3. RENAGEL [Concomitant]
     Active Substance: SEVELAMER HYDROCHLORIDE
  4. VENOFER [Concomitant]
     Active Substance: IRON SUCROSE
  5. EMTRIVA [Concomitant]
     Active Substance: EMTRICITABINE
  6. LEXIVA [Concomitant]
     Active Substance: FOSAMPRENAVIR CALCIUM
  7. SUSTIVA [Concomitant]
     Active Substance: EFAVIRENZ
  8. TIVICAY [Concomitant]
     Active Substance: DOLUTEGRAVIR SODIUM
  9. LAMIVUDINE. [Concomitant]
     Active Substance: LAMIVUDINE
  10. ISENTRESS [Concomitant]
     Active Substance: RALTEGRAVIR POTASSIUM
  11. ZIAGEN [Concomitant]
     Active Substance: ABACAVIR SULFATE
  12. VIREAD [Suspect]
     Active Substance: TENOFOVIR DISOPROXIL FUMARATE
     Indication: HIV INFECTION
     Dosage: UNK
     Route: 048
     Dates: start: 2001, end: 2004
  13. TRUVADA [Suspect]
     Active Substance: EMTRICITABINE\TENOFOVIR DISOPROXIL FUMARATE
     Indication: HIV INFECTION
     Dosage: UNK
     Route: 048
     Dates: start: 2001, end: 2015
  14. NORVIR [Concomitant]
     Active Substance: RITONAVIR
  15. SYMTUZA [Concomitant]
     Active Substance: COBICISTAT\DARUNAVIR\EMTRICITABINE\TENOFOVIR ALAFENAMIDE
  16. MYCOPHENOLATE MOFETIL. [Concomitant]
     Active Substance: MYCOPHENOLATE MOFETIL
  17. KALETRA [Concomitant]
     Active Substance: LOPINAVIR\RITONAVIR
  18. ZERIT [Concomitant]
     Active Substance: STAVUDINE
  19. METOPROLOL. [Concomitant]
     Active Substance: METOPROLOL
  20. ZEMPLAR [Concomitant]
     Active Substance: PARICALCITOL
  21. COMBIVIR [Concomitant]
     Active Substance: LAMIVUDINE\ZIDOVUDINE

REACTIONS (8)
  - End stage renal disease [Recovered/Resolved]
  - Anxiety [Not Recovered/Not Resolved]
  - Renal failure [Unknown]
  - Emotional distress [Not Recovered/Not Resolved]
  - Pain [Not Recovered/Not Resolved]
  - Pneumonia [Recovered/Resolved]
  - Economic problem [Not Recovered/Not Resolved]
  - Anhedonia [Not Recovered/Not Resolved]

NARRATIVE: CASE EVENT DATE: 2006
